FAERS Safety Report 5703992-3 (Version None)
Quarter: 2008Q2

REPORT INFORMATION
  Report Type: 
  Country: None (occurrence: None)
  Receive Date: 20080414
  Receipt Date: 20080404
  Transmission Date: 20081010
  Serious: Yes (Hospitalization, Other)
  Sender: FDA-Public Use
  Company Number: GB-JNJFOC-20080201873

PATIENT
  Sex: Female
  Weight: 64 kg

DRUGS (10)
  1. REMICADE [Suspect]
     Indication: RHEUMATOID ARTHRITIS
     Route: 042
  2. METHOTREXATE [Concomitant]
  3. CETIRIZINE HCL [Concomitant]
  4. CLOMIPRAMINE HCL [Concomitant]
  5. CLONIDINE HCL [Concomitant]
  6. FOLIC ACID [Concomitant]
  7. LEVOTHYROXINE SODIUM [Concomitant]
  8. TRAMADOL HCL [Concomitant]
  9. TROSPIUM [Concomitant]
  10. CALFOVIT D3 [Concomitant]

REACTIONS (2)
  - POSTOPERATIVE WOUND INFECTION [None]
  - RHEUMATOID NODULE [None]
